FAERS Safety Report 11048271 (Version 1)
Quarter: 2015Q2

REPORT INFORMATION
  Report Type: Spontaneous
  Country: US (occurrence: None)
  Receive Date: 20150417
  Receipt Date: 20150417
  Transmission Date: 20150821
  Serious: No
  Sender: FDA-Public Use
  Company Number: None

PATIENT
  Age: 32 Year
  Sex: Female

DRUGS (1)
  1. LUPRON DEPOT [Suspect]
     Active Substance: LEUPROLIDE ACETATE
     Indication: ENDOMETRIOSIS
     Dosage: Q4WK
     Route: 030

REACTIONS (4)
  - Endometriosis [None]
  - Mood swings [None]
  - Menorrhagia [None]
  - Insomnia [None]

NARRATIVE: CASE EVENT DATE: 201503
